FAERS Safety Report 14340484 (Version 4)
Quarter: 2018Q2

REPORT INFORMATION
  Report Type: Report from Study
  Country: JP (occurrence: JP)
  Receive Date: 20180101
  Receipt Date: 20180404
  Transmission Date: 20180711
  Serious: Yes (Hospitalization)
  Sender: FDA-Public Use
  Company Number: JP-ROCHE-2048444

PATIENT
  Age: 67 Year
  Sex: Male

DRUGS (13)
  1. CINAL [Concomitant]
     Active Substance: ASCORBIC ACID\CALCIUM PANTOTHENATE
  2. REBAMIPIDE [Concomitant]
     Active Substance: REBAMIPIDE
  3. TOCILIZUMAB. [Suspect]
     Active Substance: TOCILIZUMAB
     Route: 058
     Dates: start: 20161207, end: 20161207
  4. ASPIRIN. [Concomitant]
     Active Substance: ASPIRIN
  5. ATORVASTATIN [Concomitant]
     Active Substance: ATORVASTATIN
  6. RISEDRONATE SODIUM. [Concomitant]
     Active Substance: RISEDRONATE SODIUM
  7. NEXIUM [Concomitant]
     Active Substance: ESOMEPRAZOLE MAGNESIUM
  8. DIGOXIN. [Concomitant]
     Active Substance: DIGOXIN
  9. FEBUXOSTAT. [Concomitant]
     Active Substance: FEBUXOSTAT
  10. WARFARIN [Concomitant]
     Active Substance: WARFARIN
  11. FUROSEMIDE. [Concomitant]
     Active Substance: FUROSEMIDE
  12. TOCILIZUMAB. [Suspect]
     Active Substance: TOCILIZUMAB
     Indication: RHEUMATOID ARTHRITIS
     Route: 058
     Dates: start: 20160523
  13. XYZAL [Concomitant]
     Active Substance: LEVOCETIRIZINE DIHYDROCHLORIDE

REACTIONS (2)
  - Pleurisy [Recovered/Resolved]
  - Hepatic function abnormal [Unknown]

NARRATIVE: CASE EVENT DATE: 20161212
